FAERS Safety Report 7530138-1 (Version None)
Quarter: 2011Q2

REPORT INFORMATION
  Report Type: 
  Country: None (occurrence: None)
  Receive Date: 20110527
  Receipt Date: 20110517
  Transmission Date: 20111010
  Serious: Yes (Hospitalization, Other)
  Sender: FDA-Public Use
  Company Number: 2011SP022932

PATIENT
  Sex: Male

DRUGS (1)
  1. MIRALAX [Suspect]
     Indication: PRODUCT USED FOR UNKNOWN INDICATION
     Dosage: ; PO
     Route: 048

REACTIONS (6)
  - DYSPNOEA [None]
  - DIZZINESS [None]
  - DRUG HYPERSENSITIVITY [None]
  - TOXICITY TO VARIOUS AGENTS [None]
  - CARDIAC DISORDER [None]
  - HYPOTENSION [None]
